FAERS Safety Report 11841145 (Version 5)
Quarter: 2016Q1

REPORT INFORMATION
  Report Type: Spontaneous
  Country: JP (occurrence: JP)
  Receive Date: 20151216
  Receipt Date: 20160314
  Transmission Date: 20160526
  Serious: Yes (Hospitalization, Other)
  Sender: FDA-Public Use
  Company Number: JP-PFIZER INC-2015443726

PATIENT
  Age: 74 Year
  Sex: Male
  Weight: 57 kg

DRUGS (3)
  1. CELECOX [Suspect]
     Active Substance: CELECOXIB
     Indication: BACK PAIN
     Dosage: 100 MG, 2X/DAY
     Route: 048
     Dates: start: 20150402, end: 20150409
  2. EMEDASTINE [Suspect]
     Active Substance: EMEDASTINE
     Indication: BACK PAIN
     Dosage: 2 MG, 2X/DAY
     Route: 048
     Dates: start: 20150402, end: 20150409
  3. LIMAPROST ALFADEX [Suspect]
     Active Substance: LIMAPROST
     Indication: BACK PAIN
     Dosage: 5 UG, 3X/DAY
     Route: 048
     Dates: start: 20150402, end: 20150409

REACTIONS (2)
  - Dermatitis allergic [Recovered/Resolved]
  - Prinzmetal angina [Recovered/Resolved]

NARRATIVE: CASE EVENT DATE: 20150409
